FAERS Safety Report 6734130-6 (Version None)
Quarter: 2010Q2

REPORT INFORMATION
  Report Type: 
  Country: None (occurrence: None)
  Receive Date: 20100520
  Receipt Date: 20100518
  Transmission Date: 20101027
  Serious: Yes (Hospitalization)
  Sender: FDA-Public Use
  Company Number: FR-BRISTOL-MYERS SQUIBB COMPANY-15110042

PATIENT
  Sex: Female

DRUGS (2)
  1. ABILIFY [Suspect]
  2. CHEMOTHERAPY [Interacting]
     Indication: LEUKAEMIA

REACTIONS (1)
  - DRUG INTERACTION [None]
